FAERS Safety Report 23763317 (Version 1)
Quarter: 2024Q2

REPORT INFORMATION
  Report Type: Spontaneous
  Country: US (occurrence: None)
  Receive Date: 20240419
  Receipt Date: 20240419
  Transmission Date: 20240716
  Serious: No
  Sender: FDA-Public Use
  Company Number: None

PATIENT
  Age: 80 Year
  Sex: Female
  Weight: 0.0 kg

DRUGS (1)
  1. COSENTYX [Suspect]
     Active Substance: SECUKINUMAB
     Indication: Psoriasis
     Dosage: INJECT 300MG (1 PEN) SUBCUTANEOUSLY EVERY 4 WEEKS AS DIRECTED.
     Route: 058
     Dates: start: 202306

REACTIONS (3)
  - Rash [None]
  - Herpes zoster [None]
  - Ulcer haemorrhage [None]
